FAERS Safety Report 16047767 (Version 2)
Quarter: 2019Q2

REPORT INFORMATION
  Report Type: Spontaneous
  Country: GB (occurrence: GB)
  Receive Date: 20190307
  Receipt Date: 20190610
  Transmission Date: 20190711
  Serious: Yes (Hospitalization, Congenital Anomaly, Other)
  Sender: FDA-Public Use
  Company Number: GB-MYLANLABS-2019M1020484

PATIENT
  Age: 8 Day
  Sex: Male
  Weight: 1.09 kg

DRUGS (5)
  1. MAGNESIUM SULFATE. [Concomitant]
     Active Substance: MAGNESIUM SULFATE
     Dosage: UNK
  2. LAMOTRIGINE. [Suspect]
     Active Substance: LAMOTRIGINE
     Indication: EPILEPSY
     Dosage: 500 MILLIGRAM, QD
     Route: 064
  3. FOLIC ACID. [Concomitant]
     Active Substance: FOLIC ACID
     Dosage: UNK
     Route: 064
  4. CAFFEINE CITRATE. [Concomitant]
     Active Substance: CAFFEINE CITRATE
     Indication: APNOEA
     Dosage: UNK
  5. LAMOTRIGINE. [Suspect]
     Active Substance: LAMOTRIGINE
     Dosage: 400 MILLIGRAM, QD
     Route: 064

REACTIONS (14)
  - Atrial septal defect [Not Recovered/Not Resolved]
  - Sepsis [Unknown]
  - Intraventricular haemorrhage neonatal [Not Recovered/Not Resolved]
  - Tachycardia foetal [Not Recovered/Not Resolved]
  - Bone metabolism disorder [Unknown]
  - Neonatal respiratory distress syndrome [Unknown]
  - Foetal exposure during pregnancy [Recovered/Resolved]
  - Anaemia [Unknown]
  - Intraventricular haemorrhage [Not Recovered/Not Resolved]
  - Patent ductus arteriosus [Not Recovered/Not Resolved]
  - Apnoea [Unknown]
  - Ventricular septal defect [Not Recovered/Not Resolved]
  - Transverse presentation [Unknown]
  - Premature baby [Unknown]
